FAERS Safety Report 4353382-3 (Version None)
Quarter: 2004Q2

REPORT INFORMATION
  Report Type: 
  Country: None (occurrence: None)
  Receive Date: 20040429
  Receipt Date: 20040327
  Transmission Date: 20050107
  Serious: Yes (Hospitalization, Other)
  Sender: FDA-Public Use
  Company Number: KII-2004-0009855

PATIENT
  Sex: Female

DRUGS (1)
  1. MORPHINE SULFATE [Suspect]
     Route: 051

REACTIONS (4)
  - ACCIDENTAL OVERDOSE [None]
  - DEVICE FAILURE [None]
  - SLUGGISHNESS [None]
  - SOMNOLENCE [None]
